FAERS Safety Report 5473761-0 (Version None)
Quarter: 2007Q3

REPORT INFORMATION
  Report Type: 
  Country: None (occurrence: None)
  Receive Date: 20070831
  Receipt Date: 20070510
  Transmission Date: 20080115
  Serious: No
  Sender: FDA-Public Use
  Company Number: 241266

PATIENT
  Age: 90 Year
  Sex: Female

DRUGS (4)
  1. LUCENTIS [Suspect]
     Indication: DRUG USE FOR UNKNOWN INDICATION
     Dates: start: 20070403
  2. MICARDIS HCT [Concomitant]
  3. DIGOXIN [Concomitant]
  4. TOPROL-XL [Concomitant]

REACTIONS (2)
  - EYE PAIN [None]
  - VITREOUS FLOATERS [None]
